FAERS Safety Report 24812081 (Version 5)
Quarter: 2025Q4

REPORT INFORMATION
  Report Type: Report from Study
  Country: US (occurrence: US)
  Receive Date: 20250106
  Receipt Date: 20251224
  Transmission Date: 20260118
  Serious: Yes (Hospitalization, Other)
  Sender: OTSUKA
  Company Number: US-OTSUKA-2025_000081

PATIENT
  Age: 26 Year
  Sex: Female

DRUGS (6)
  1. TOLVAPTAN [Suspect]
     Active Substance: TOLVAPTAN
     Indication: Congenital cystic kidney disease
     Dosage: 15 MG, BID (EVERY MORNING AND 8 H LATER EVERY DAY)
     Route: 061
     Dates: start: 20241218, end: 202508
  2. TOLVAPTAN [Suspect]
     Active Substance: TOLVAPTAN
     Dosage: 15 MG, BID (EVERY MORNING AND 8 H LATER EVERY DAY) (RESUMED)
     Route: 061
     Dates: start: 2025, end: 20251118
  3. SKYRIZI [Concomitant]
     Active Substance: RISANKIZUMAB-RZAA
     Indication: Product used for unknown indication
     Dosage: 1 ML 150 MG/ML (YEARLY)
  4. LEXAPRO [Concomitant]
     Active Substance: ESCITALOPRAM OXALATE
     Indication: Product used for unknown indication
     Dosage: 2 DF, BID
     Route: 061
  5. VYVANSE [Concomitant]
     Active Substance: LISDEXAMFETAMINE DIMESYLATE
     Indication: Product used for unknown indication
     Dosage: 1 DF, QD (IN THE MORNING)
     Route: 061
  6. WELLBUTRIN SR [Concomitant]
     Active Substance: BUPROPION HYDROCHLORIDE
     Indication: Product used for unknown indication
     Dosage: 2 DF, BID (12 HOUR)
     Route: 061

REACTIONS (11)
  - Sepsis [Recovered/Resolved]
  - Renal cyst [Recovering/Resolving]
  - Urinary tract infection [Recovered/Resolved]
  - Haematochezia [Recovered/Resolved]
  - Mycobacterium tuberculosis complex test positive [Unknown]
  - Epistaxis [Unknown]
  - Abdominal pain [Unknown]
  - Dry mouth [Unknown]
  - Thirst [Recovered/Resolved]
  - Polyuria [Recovered/Resolved]
  - Underdose [Unknown]

NARRATIVE: CASE EVENT DATE: 20241218
